FAERS Safety Report 7557229-3 (Version None)
Quarter: 2011Q2

REPORT INFORMATION
  Report Type: 
  Country: None (occurrence: None)
  Receive Date: 20110620
  Receipt Date: 20110310
  Transmission Date: 20111010
  Serious: No
  Sender: FDA-Public Use
  Company Number: US-MYLANLABS-2011S1004771

PATIENT
  Age: 61 Year
  Sex: Female
  Weight: 81.65 kg

DRUGS (9)
  1. OXYGEN [Concomitant]
  2. PERFOROMIST [Suspect]
     Indication: ASTHMA
     Route: 055
     Dates: start: 20090101
  3. BUDESONIDE [Concomitant]
  4. PREVACID [Concomitant]
  5. LOVAZA [Concomitant]
  6. VITAMIN TAB [Concomitant]
  7. TRANXENE [Concomitant]
  8. PERFOROMIST [Suspect]
     Indication: EMPHYSEMA
     Route: 055
     Dates: start: 20090101
  9. WELLBUTRIN [Concomitant]

REACTIONS (2)
  - MUSCLE SPASMS [None]
  - DEMENTIA ALZHEIMER'S TYPE [None]
